FAERS Safety Report 9711748 (Version 1)
Quarter: 2013Q4

REPORT INFORMATION
  Report Type: Spontaneous
  Country: US (occurrence: None)
  Receive Date: 20131125
  Receipt Date: 20131125
  Transmission Date: 20140711
  Serious: No
  Sender: FDA-Public Use
  Company Number: None

PATIENT
  Age: 24 Year
  Sex: Female
  Weight: 45.36 kg

DRUGS (1)
  1. AMPHETAMINE (+) DEXTROAMPHETAMINE [Suspect]
     Indication: NARCOLEPSY
     Dosage: 1 CAPSULE ONCE DAILY TAKEN BY MOUTH
     Route: 048
     Dates: start: 20130126, end: 20130226

REACTIONS (3)
  - Drug ineffective [None]
  - Fatigue [None]
  - Headache [None]
